FAERS Safety Report 4630260-3 (Version None)
Quarter: 2005Q2

REPORT INFORMATION
  Report Type: 
  Country: None (occurrence: None)
  Receive Date: 20050406
  Receipt Date: 20050325
  Transmission Date: 20051028
  Serious: Yes (Other)
  Sender: FDA-Public Use
  Company Number: 2005051202

PATIENT
  Age: 67 Year
  Sex: Male
  Weight: 72.1219 kg

DRUGS (6)
  1. NICORETTE [Suspect]
     Indication: SMOKING CESSATION THERAPY
     Dosage: 1 AND 1/4 CARTRIDGE QD, INHALATION
     Route: 055
     Dates: start: 20050316, end: 20050321
  2. HYZAAR [Concomitant]
  3. DILTIAZEM HYDROCHLORIDE [Concomitant]
  4. SIMVASTATIN [Concomitant]
  5. TERAZOSIN HYDROCHLORIDE [Concomitant]
  6. ASPIRIN [Concomitant]

REACTIONS (6)
  - ABDOMINAL DISTENSION [None]
  - CIRCULATORY COLLAPSE [None]
  - DIZZINESS [None]
  - HYPOAESTHESIA [None]
  - LOSS OF CONSCIOUSNESS [None]
  - STOMACH DISCOMFORT [None]
